FAERS Safety Report 14890552 (Version 1)
Quarter: 2018Q2

REPORT INFORMATION
  Report Type: Report from Study
  Country: BR (occurrence: BR)
  Receive Date: 20180514
  Receipt Date: 20180514
  Transmission Date: 20180711
  Serious: Yes (Other)
  Sender: FDA-Public Use
  Company Number: PHHY2018BR002297

PATIENT
  Sex: Male
  Weight: 70 kg

DRUGS (2)
  1. ENTRESTO [Suspect]
     Active Substance: SACUBITRIL\VALSARTAN
     Dosage: 97MG SACUBITRIL/ 103MG VALSARTAN, UNK
     Route: 065
  2. ENTRESTO [Suspect]
     Active Substance: SACUBITRIL\VALSARTAN
     Indication: PRODUCT USED FOR UNKNOWN INDICATION
     Dosage: 49MG SACUBITRIL/ 51MG VALSARTAN, ONE IN THE MORNING AND HALF IN AFTERNOON
     Route: 065

REACTIONS (2)
  - Myocardial infarction [Unknown]
  - Wrong technique in product usage process [Unknown]
